FAERS Safety Report 8890635 (Version 1)
Quarter: 2012Q4

REPORT INFORMATION
  Report Type: 
  Country: IT (occurrence: IT)
  Receive Date: 20121107
  Receipt Date: 20121107
  Transmission Date: 20130627
  Serious: Yes (Hospitalization, Other)
  Sender: FDA-Public Use
  Company Number: PHHY2012IT096570

PATIENT
  Age: 82 Year
  Sex: Female

DRUGS (5)
  1. COTAREG [Suspect]
     Indication: HYPERTENSION
     Dosage: 1 DF (160/25 mg), daily
     Route: 048
     Dates: start: 20100125, end: 20120828
  2. LASIX [Suspect]
     Dosage: 50 mg, daily
     Route: 048
     Dates: start: 20110828, end: 20120828
  3. BI-EUGLUCON M [Concomitant]
     Dosage: (2.5 mg glybenclamide/ 400 mg met)
     Route: 048
  4. CARDIOASPIRIN [Concomitant]
     Dosage: 1 (100mg) tablet at lunch every day
     Route: 048
  5. CARDIOASPIRIN [Concomitant]
     Dosage: 1 DF, at lunch every day

REACTIONS (21)
  - Cardiac failure [Recovering/Resolving]
  - Sick sinus syndrome [Unknown]
  - Sinus arrhythmia [Unknown]
  - Supraventricular extrasystoles [Unknown]
  - Ventricular tachycardia [Unknown]
  - Bradycardia [Unknown]
  - Cardiac valve disease [Unknown]
  - Mitral valve incompetence [Unknown]
  - Aortic valve incompetence [Unknown]
  - Ventricular dyskinesia [Unknown]
  - Left ventricular hypertrophy [Unknown]
  - Dilatation atrial [Unknown]
  - Pyelocaliectasis [Unknown]
  - Cholelithiasis [Unknown]
  - Vitamin D deficiency [Unknown]
  - Pulmonary arterial pressure increased [Unknown]
  - Hypokalaemia [Recovered/Resolved]
  - Electrocardiogram QT prolonged [Recovered/Resolved]
  - Arthralgia [Unknown]
  - C-reactive protein increased [Recovering/Resolving]
  - Hypertension [Unknown]
